FAERS Safety Report 20226469 (Version 1)
Quarter: 2021Q4

REPORT INFORMATION
  Report Type: Spontaneous
  Country: CN (occurrence: CN)
  Receive Date: 20211224
  Receipt Date: 20211224
  Transmission Date: 20220303
  Serious: Yes (Other)
  Sender: FDA-Public Use
  Company Number: CN-PFIZER INC-202101806424

PATIENT
  Age: 40 Year
  Sex: Male
  Weight: 51 kg

DRUGS (3)
  1. ZOLOFT [Suspect]
     Active Substance: SERTRALINE HYDROCHLORIDE
     Indication: Major depression
     Dosage: 200.000 MG, 1X/DAY
     Route: 048
     Dates: start: 20211105, end: 20211202
  2. TANDOSPIRONE [Suspect]
     Active Substance: TANDOSPIRONE
     Indication: Major depression
     Dosage: 20 MG, 3X/DAY
     Route: 048
     Dates: start: 20211105, end: 20211124
  3. ARIPIPRAZOLE [Suspect]
     Active Substance: ARIPIPRAZOLE
     Indication: Major depression
     Dosage: 10 MG, 1X/DAY
     Route: 048
     Dates: start: 20211109, end: 20211130

REACTIONS (2)
  - Hepatic function abnormal [Recovering/Resolving]
  - Drug-induced liver injury [Recovering/Resolving]

NARRATIVE: CASE EVENT DATE: 20211124
